FAERS Safety Report 11969888 (Version 1)
Quarter: 2016Q1

REPORT INFORMATION
  Report Type: Spontaneous
  Country: US (occurrence: US)
  Receive Date: 20160128
  Receipt Date: 20160128
  Transmission Date: 20160526
  Serious: No
  Sender: FDA-Public Use
  Company Number: US-BRACCO-011999

PATIENT
  Sex: Male

DRUGS (1)
  1. CARDIOGEN-82 [Suspect]
     Active Substance: RUBIDIUM CHLORIDE RB-82
     Indication: POSITRON EMISSION TOMOGRAM
     Route: 042
     Dates: start: 20150415, end: 20150415

REACTIONS (2)
  - No adverse event [Recovered/Resolved]
  - Drug ineffective [Recovered/Resolved]

NARRATIVE: CASE EVENT DATE: 20150415
